FAERS Safety Report 18924164 (Version 2)
Quarter: 2021Q1

REPORT INFORMATION
  Report Type: Other
  Country: HU (occurrence: HU)
  Receive Date: 20210222
  Receipt Date: 20210223
  Transmission Date: 20210420
  Serious: Yes (Death)
  Sender: FDA-Public Use
  Company Number: HU-ROCHE-2775370

PATIENT

DRUGS (1)
  1. ACTILYSE [Suspect]
     Active Substance: ALTEPLASE
     Indication: PERIPHERAL ISCHAEMIA
     Dosage: 5 MG IN BOLUS, THEN CONTINUOUS ADMINISTRATION WITH 2 MG/H (MEDIAN DOSES)
     Route: 040

REACTIONS (1)
  - Death [Fatal]
